FAERS Safety Report 9608924 (Version 3)
Quarter: 2014Q2

REPORT INFORMATION
  Report Type: Spontaneous
  Country: US (occurrence: US)
  Receive Date: 20131009
  Receipt Date: 20140424
  Transmission Date: 20141212
  Serious: No
  Sender: FDA-Public Use
  Company Number: US-009507513-1309USA007857

PATIENT
  Age: 58 Year
  Sex: Female

DRUGS (4)
  1. REBETOL [Suspect]
     Indication: HEPATITIS C
     Dosage: UNK
     Route: 048
     Dates: start: 20130727
  2. VICTRELIS [Suspect]
     Indication: HEPATITIS C
     Dosage: UNK
     Route: 048
     Dates: start: 20130915
  3. VICTRELIS [Suspect]
     Dosage: UNK
     Route: 048
     Dates: end: 20140102
  4. PEGASYS [Suspect]
     Indication: HEPATITIS C
     Dosage: UNK
     Dates: start: 20130727

REACTIONS (11)
  - Influenza [Unknown]
  - Pruritus [Unknown]
  - Pruritus [Unknown]
  - Skin haemorrhage [Unknown]
  - Skin mass [Unknown]
  - Fatigue [Unknown]
  - Dysgeusia [Unknown]
  - Dysgeusia [Unknown]
  - Insomnia [Unknown]
  - Nausea [Unknown]
  - Alopecia [Not Recovered/Not Resolved]
